FAERS Safety Report 15882418 (Version 5)
Quarter: 2019Q3

REPORT INFORMATION
  Report Type: Spontaneous
  Country: US (occurrence: US)
  Receive Date: 20190129
  Receipt Date: 20190807
  Transmission Date: 20191004
  Serious: Yes (Hospitalization)
  Sender: FDA-Public Use
  Company Number: US-BIOGEN-2019BI00688712

PATIENT
  Sex: Female

DRUGS (3)
  1. TYSABRI [Suspect]
     Active Substance: NATALIZUMAB
     Indication: MULTIPLE SCLEROSIS
     Route: 050
     Dates: start: 20070222, end: 20170804
  2. TYSABRI [Suspect]
     Active Substance: NATALIZUMAB
     Route: 050
     Dates: start: 20180307
  3. BIOTIN [Suspect]
     Active Substance: BIOTIN
     Indication: PRODUCT USED FOR UNKNOWN INDICATION
     Route: 065

REACTIONS (15)
  - Rash [Recovered/Resolved]
  - Eyelid function disorder [Unknown]
  - Thyroid function test abnormal [Unknown]
  - Pain [Unknown]
  - Post-traumatic stress disorder [Unknown]
  - Anger [Unknown]
  - Depression [Unknown]
  - Headache [Not Recovered/Not Resolved]
  - Feeling of despair [Unknown]
  - Prescribed underdose [Unknown]
  - Cognitive disorder [Unknown]
  - Eating disorder [Unknown]
  - Chest pain [Unknown]
  - Somnolence [Unknown]
  - Fatigue [Unknown]
